FAERS Safety Report 24659294 (Version 1)
Quarter: 2024Q4

REPORT INFORMATION
  Report Type: Spontaneous
  Country: US (occurrence: US)
  Receive Date: 20241125
  Receipt Date: 20241125
  Transmission Date: 20250114
  Serious: Yes (Other)
  Sender: PFIZER
  Company Number: US-PFIZER INC-PV202400151051

PATIENT
  Age: 64 Year
  Sex: Female
  Weight: 59 kg

DRUGS (24)
  1. SPIRONOLACTONE [Suspect]
     Active Substance: SPIRONOLACTONE
     Indication: Hypertension
     Dosage: HALF DOSE
  2. KORLYM [Suspect]
     Active Substance: MIFEPRISTONE
     Indication: Cushing^s syndrome
     Dosage: 300 MG, 1X/DAY
     Route: 048
     Dates: start: 20190316, end: 20191104
  3. KORLYM [Suspect]
     Active Substance: MIFEPRISTONE
     Dosage: 600 MG, 1X/DAY
     Route: 048
     Dates: start: 20190412, end: 20190530
  4. KORLYM [Suspect]
     Active Substance: MIFEPRISTONE
     Dosage: ALTERNATE KORLYM DAILY BETWEEN 600 MG AND 900 MG, ORAL USE
     Route: 048
     Dates: start: 20190606, end: 20220322
  5. KORLYM [Suspect]
     Active Substance: MIFEPRISTONE
     Dosage: ALTERNATE KORLYM DAILY BETWEEN 600 MG AND 900 MG, ORAL USE
     Route: 048
     Dates: start: 20190606, end: 20220322
  6. KORLYM [Suspect]
     Active Substance: MIFEPRISTONE
     Dosage: 300MG ALT WITH 600MG, ORAL USE
     Route: 048
     Dates: start: 20200323, end: 20200428
  7. KORLYM [Suspect]
     Active Substance: MIFEPRISTONE
     Dosage: 300MG ALT WITH 600MG, ORAL USE
     Route: 048
     Dates: start: 20200323, end: 20200428
  8. KORLYM [Suspect]
     Active Substance: MIFEPRISTONE
     Dosage: 300MG ALT WITH 600MG, REPEAT ORAL USE
     Route: 048
     Dates: start: 20200429, end: 20220302
  9. KORLYM [Suspect]
     Active Substance: MIFEPRISTONE
     Dosage: 300MG ALT WITH 600MG, REPEAT ORAL USE
     Route: 048
     Dates: start: 20200429, end: 20220302
  10. KORLYM [Suspect]
     Active Substance: MIFEPRISTONE
     Dosage: 300 MG, QD (ONCE A DAY), ORAL USE
     Route: 048
     Dates: start: 20220303, end: 202304
  11. KORLYM [Suspect]
     Active Substance: MIFEPRISTONE
     Dosage: 300 MG, QD (ONCE A DAY), ORAL USE
     Route: 048
     Dates: start: 20230614, end: 202408
  12. EVISTA [Concomitant]
     Active Substance: RALOXIFENE HYDROCHLORIDE
     Dosage: UNK
  13. FENOFIBRATE [Concomitant]
     Active Substance: FENOFIBRATE
     Dosage: UNK
  14. LOTREL [Concomitant]
     Active Substance: AMLODIPINE BESYLATE\BENAZEPRIL HYDROCHLORIDE
     Dosage: UNK
  15. SINGULAIR [Concomitant]
     Active Substance: MONTELUKAST SODIUM
     Dosage: UNK
  16. XANAX [Concomitant]
     Active Substance: ALPRAZOLAM
     Dosage: UNK
  17. COVID-19 VACCINE [Concomitant]
     Dosage: UNK
  18. ASPIRIN [Concomitant]
     Active Substance: ASPIRIN
     Dosage: UNK
  19. BYSTOLIC [Concomitant]
     Active Substance: NEBIVOLOL HYDROCHLORIDE
     Indication: Blood pressure measurement
     Dosage: UNK
  20. POTASSIUM [Concomitant]
     Active Substance: POTASSIUM
     Dosage: UNK
  21. ALEVE [Concomitant]
     Active Substance: NAPROXEN SODIUM
     Dosage: UNK
  22. IBUPROFEN [Concomitant]
     Active Substance: IBUPROFEN
     Dosage: UNK
  23. AMLODIPINE [Concomitant]
     Active Substance: AMLODIPINE BESYLATE
     Indication: Blood pressure measurement
     Dosage: 5 MG, 1X/DAY
  24. VALSARTAN [Concomitant]
     Active Substance: VALSARTAN
     Indication: Blood pressure measurement
     Dosage: 320 MG, 1X/DAY

REACTIONS (4)
  - Cataract [Not Recovered/Not Resolved]
  - Blood potassium increased [Recovered/Resolved]
  - Depressed mood [Not Recovered/Not Resolved]
  - Blood pressure systolic increased [Unknown]

NARRATIVE: CASE EVENT DATE: 20240101
